FAERS Safety Report 5767919-0 (Version None)
Quarter: 2008Q2

REPORT INFORMATION
  Report Type: 
  Country: None (occurrence: None)
  Receive Date: 20080612
  Receipt Date: 20080605
  Transmission Date: 20081010
  Serious: No
  Sender: FDA-Public Use
  Company Number: US-BAXTER-2008BH001951

PATIENT
  Age: 29 Year
  Sex: Female

DRUGS (2)
  1. HEPARIN SODIUM INJECTION [Suspect]
     Indication: PROPHYLAXIS
     Route: 033
  2. HEPARIN SODIUM INJECTION [Suspect]
     Route: 033

REACTIONS (1)
  - BLOODY PERITONEAL EFFLUENT [None]
